FAERS Safety Report 6527464-1 (Version None)
Quarter: 2010Q1

REPORT INFORMATION
  Report Type: 
  Country: None (occurrence: None)
  Receive Date: 20100105
  Receipt Date: 20091223
  Transmission Date: 20100710
  Serious: Yes (Hospitalization, Other)
  Sender: FDA-Public Use
  Company Number: IT-WATSON-2009-11138

PATIENT
  Age: 10 Day
  Sex: Male

DRUGS (4)
  1. PREDNISONE TAB [Suspect]
     Indication: IMMUNOSUPPRESSION
     Dosage: 0.6 MG/KG DAILY,SPLIT IN 2 DOSES
  2. CYCLOSPORINE [Suspect]
     Indication: IMMUNOSUPPRESSION
     Dosage: 4 MG/KG, LOADING DOSE
     Route: 048
  3. CYCLOSPORINE [Suspect]
     Dosage: ADJUSTED TO THERAPEUTIC LEVEL 100-350 NG/ML
     Route: 048
  4. AZATHIOPRINE [Suspect]
     Indication: IMMUNOSUPPRESSION
     Dosage: 2 MG/KG, DAILY, ADJUST TO WBC

REACTIONS (2)
  - DRUG INEFFECTIVE [None]
  - RENAL FAILURE [None]
